FAERS Safety Report 7215229-7 (Version None)
Quarter: 2011Q1

REPORT INFORMATION
  Report Type: 
  Country: None (occurrence: None)
  Receive Date: 20110107
  Receipt Date: 20101227
  Transmission Date: 20110831
  Serious: Yes (Other)
  Sender: FDA-Public Use
  Company Number: PHHY2010DE83806

PATIENT
  Age: 11 Year
  Sex: Male
  Weight: 27 kg

DRUGS (3)
  1. SANDIMMUNE [Suspect]
     Indication: BONE MARROW TRANSPLANT
     Dosage: UNK
     Route: 048
     Dates: start: 20100305, end: 20101001
  2. CYCLOSPORINE [Suspect]
     Dosage: UNK
     Dates: start: 20100801, end: 20100801
  3. CYCLOSPORINE [Suspect]
     Indication: BONE MARROW TRANSPLANT
     Dosage: UNK
     Dates: start: 20100209, end: 20100305

REACTIONS (14)
  - PHOTOSENSITIVITY REACTION [None]
  - PANCREATIC DISORDER [None]
  - COUGH [None]
  - WEIGHT DECREASED [None]
  - PRURITUS [None]
  - EPISTAXIS [None]
  - JOINT STIFFNESS [None]
  - DYSURIA [None]
  - VOMITING [None]
  - IMMUNOSUPPRESSANT DRUG LEVEL DECREASED [None]
  - LIVER DISORDER [None]
  - GRAFT VERSUS HOST DISEASE [None]
  - RASH GENERALISED [None]
  - EYE DISORDER [None]
